FAERS Safety Report 9014138 (Version 1)
Quarter: 2013Q1

REPORT INFORMATION
  Report Type: Spontaneous
  Country: FR (occurrence: FR)
  Receive Date: 20130115
  Receipt Date: 20130115
  Transmission Date: 20140127
  Serious: Yes (Death, Other)
  Sender: FDA-Public Use
  Company Number: FR-TEVA-379992USA

PATIENT
  Age: 67 Year
  Sex: Female

DRUGS (15)
  1. TREANDA [Suspect]
     Indication: PRODUCT USED FOR UNKNOWN INDICATION
     Dosage: ONLY DAY 1, 3 COURSES
     Dates: start: 20120227
  2. VELCADE [Suspect]
     Indication: PRODUCT USED FOR UNKNOWN INDICATION
     Route: 042
     Dates: start: 200902
  3. VELCADE [Suspect]
     Route: 042
     Dates: start: 200911
  4. VELCADE [Suspect]
     Route: 042
     Dates: start: 201007
  5. VELCADE [Suspect]
     Route: 042
     Dates: start: 201106
  6. VELCADE [Suspect]
     Dosage: DAY 1, 4
     Route: 042
  7. VELCADE [Suspect]
     Dosage: DAY 8, 11
     Route: 042
  8. MELPHALAN [Suspect]
     Indication: PRODUCT USED FOR UNKNOWN INDICATION
     Dosage: IN ONE DAY
     Route: 048
     Dates: start: 200701
  9. MELPHALAN [Suspect]
     Dosage: IN ONE DAY
     Route: 048
     Dates: start: 201106
  10. DEXAMETHASONE [Suspect]
     Indication: PRODUCT USED FOR UNKNOWN INDICATION
     Dosage: 5.7143 MILLIGRAM DAILY;
     Dates: start: 200902
  11. DEXAMETHASONE [Suspect]
     Dosage: 2.8571 MILLIGRAM DAILY;
     Dates: start: 201009
  12. CYCLOPHOSPHAMIDE [Suspect]
     Indication: PRODUCT USED FOR UNKNOWN INDICATION
     Dates: start: 20090610
  13. REVLIMID [Suspect]
     Indication: PRODUCT USED FOR UNKNOWN INDICATION
     Route: 048
     Dates: start: 201009
  14. PREDNISONE [Concomitant]
     Dates: start: 201106
  15. PREDNISONE [Concomitant]
     Dosage: DURING 4 CONSECUTIVE DAYS EVERY 6 WEEKS
     Dates: start: 200701

REACTIONS (2)
  - Acute leukaemia [Fatal]
  - Disease progression [Fatal]
